FAERS Safety Report 15507174 (Version 2)
Quarter: 2019Q1

REPORT INFORMATION
  Report Type: Other
  Country: CA (occurrence: CA)
  Receive Date: 20181016
  Receipt Date: 20190122
  Transmission Date: 20190417
  Serious: Yes (Other)
  Sender: FDA-Public Use
  Company Number: CA-PFIZER INC-2018415054

PATIENT
  Age: 1 Year
  Weight: 10.5 kg

DRUGS (1)
  1. HYDROMORPHONE HYDROCHLORIDE. [Suspect]
     Active Substance: HYDROMORPHONE HYDROCHLORIDE
     Indication: PAIN MANAGEMENT
     Dosage: UNK
     Route: 041

REACTIONS (4)
  - Pain [Unknown]
  - Product use issue [Unknown]
  - Apnoea [Unknown]
  - Inadequate analgesia [Unknown]
